FAERS Safety Report 8778075 (Version 2)
Quarter: 2012Q4

REPORT INFORMATION
  Report Type: 
  Country: US (occurrence: US)
  Receive Date: 20120912
  Receipt Date: 20121207
  Transmission Date: 20130627
  Serious: Yes (Hospitalization)
  Sender: FDA-Public Use
  Company Number: US-BAYER-2012-092569

PATIENT
  Age: 30 Year
  Sex: Female
  Weight: 74.83 kg

DRUGS (1)
  1. MIRENA [Suspect]
     Indication: BIRTH CONTROL
     Dosage: 20 mcg/24hr, CONT
     Route: 015
     Dates: start: 201110, end: 20120831

REACTIONS (10)
  - Menorrhagia [Recovered/Resolved]
  - Neck pain [Recovered/Resolved]
  - Back pain [Recovered/Resolved]
  - Headache [Recovered/Resolved]
  - Ectopic pregnancy [Recovered/Resolved]
  - Fatigue [Recovered/Resolved]
  - Nausea [Recovered/Resolved]
  - Drug ineffective [None]
  - Fallopian tube disorder [None]
  - Emotional distress [None]
